FAERS Safety Report 23259005 (Version 1)
Quarter: 2023Q4

REPORT INFORMATION
  Report Type: Spontaneous
  Country: US (occurrence: None)
  Receive Date: 20231202
  Receipt Date: 20231202
  Transmission Date: 20240110
  Serious: Yes (Hospitalization)
  Sender: FDA-Public Use
  Company Number: None

PATIENT
  Age: 75 Year
  Sex: Male

DRUGS (1)
  1. VANCOMYCIN HYDROCHLORIDE [Suspect]
     Active Substance: VANCOMYCIN HYDROCHLORIDE
     Dates: start: 20231028, end: 20231028

REACTIONS (4)
  - Anaphylactic reaction [None]
  - Dyspnoea [None]
  - Infusion [None]
  - Flushing [None]

NARRATIVE: CASE EVENT DATE: 20231028
